FAERS Safety Report 20918178 (Version 3)
Quarter: 2022Q3

REPORT INFORMATION
  Report Type: Spontaneous
  Country: US (occurrence: US)
  Receive Date: 20220606
  Receipt Date: 20220718
  Transmission Date: 20221027
  Serious: No
  Sender: FDA-Public Use
  Company Number: US-GLAXOSMITHKLINE-US2022087609

PATIENT
  Sex: Female

DRUGS (3)
  1. ZEJULA [Suspect]
     Active Substance: NIRAPARIB
     Indication: Ovarian cancer
     Dosage: 1 DF, QD
  2. ZEJULA [Suspect]
     Active Substance: NIRAPARIB
     Dosage: 200 MG, QD
     Dates: start: 20220517
  3. ZEJULA [Suspect]
     Active Substance: NIRAPARIB
     Dosage: 100 MG, PM EVERY OTHER DAY

REACTIONS (8)
  - Adverse drug reaction [Unknown]
  - Vitamin D decreased [Unknown]
  - Neck pain [Unknown]
  - Back pain [Unknown]
  - Blood pressure increased [Unknown]
  - Drug intolerance [Unknown]
  - Inappropriate schedule of product administration [Recovered/Resolved]
  - Intentional product use issue [Unknown]
